FAERS Safety Report 7234251-8 (Version None)
Quarter: 2011Q1

REPORT INFORMATION
  Report Type: 
  Country: None (occurrence: None)
  Receive Date: 20110119
  Receipt Date: 20110117
  Transmission Date: 20110831
  Serious: Yes (Disabling)
  Sender: FDA-Public Use
  Company Number: PHHO2011TR01157

PATIENT
  Age: 65 Year
  Sex: Female

DRUGS (2)
  1. AFINITOR [Suspect]
     Indication: METASTATIC RENAL CELL CARCINOMA
     Dosage: 10 MG, QD
     Route: 048
     Dates: start: 20101110, end: 20101206
  2. EUTHYROX [Concomitant]
     Indication: HYPOTHYROIDISM

REACTIONS (1)
  - EPILEPSY [None]
